FAERS Safety Report 16739498 (Version 2)
Quarter: 2019Q3

REPORT INFORMATION
  Report Type: Report from Study
  Country: US (occurrence: US)
  Receive Date: 20190826
  Receipt Date: 20190830
  Transmission Date: 20191005
  Serious: Yes (Hospitalization)
  Sender: FDA-Public Use
  Company Number: US-GILEAD-2019-0424879

PATIENT
  Age: 70 Year
  Sex: Male

DRUGS (3)
  1. AMBRISENTAN [Suspect]
     Active Substance: AMBRISENTAN
     Dosage: 10 MG, QD
     Route: 048
     Dates: start: 20181227
  2. AMBRISENTAN [Suspect]
     Active Substance: AMBRISENTAN
     Indication: PULMONARY ARTERIAL HYPERTENSION
     Dosage: 5 MG, QD
     Route: 048
     Dates: start: 20181227
  3. ELIQUIS [Concomitant]
     Active Substance: APIXABAN

REACTIONS (1)
  - Palpitations [Unknown]
